FAERS Safety Report 23757024 (Version 2)
Quarter: 2024Q2

REPORT INFORMATION
  Report Type: Report from Study
  Country: US (occurrence: US)
  Receive Date: 20240418
  Receipt Date: 20240611
  Transmission Date: 20240715
  Serious: No
  Sender: FDA-Public Use
  Company Number: US-MYLANLABS-2024M1029157

PATIENT
  Age: 75 Year
  Sex: Female
  Weight: 56.69 kg

DRUGS (1)
  1. TYRVAYA [Suspect]
     Active Substance: VARENICLINE TARTRATE
     Indication: Dry eye
     Dosage: UNK, BID (TWO SQUIRTS TWICE A DAY)
     Route: 065
     Dates: start: 20240315, end: 20240329

REACTIONS (3)
  - Periorbital swelling [Unknown]
  - Erythema [Unknown]
  - Product delivery mechanism issue [Unknown]

NARRATIVE: CASE EVENT DATE: 20240401
